FAERS Safety Report 21611541 (Version 1)
Quarter: 2022Q4

REPORT INFORMATION
  Report Type: Spontaneous
  Country: US (occurrence: None)
  Receive Date: 20221117
  Receipt Date: 20221117
  Transmission Date: 20230112
  Serious: No
  Sender: FDA-Public Use
  Company Number: None

PATIENT
  Sex: Female
  Weight: 36.2 kg

DRUGS (1)
  1. CISPLATIN [Suspect]
     Active Substance: CISPLATIN
     Dates: end: 20210429

REACTIONS (4)
  - Hydronephrosis [None]
  - Urinary tract infection [None]
  - Urinary tract obstruction [None]
  - Renal impairment [None]

NARRATIVE: CASE EVENT DATE: 20221102
